FAERS Safety Report 6253217-8 (Version None)
Quarter: 2009Q3

REPORT INFORMATION
  Report Type: 
  Country: None (occurrence: None)
  Receive Date: 20090701
  Receipt Date: 20090625
  Transmission Date: 20100115
  Serious: Yes (Hospitalization)
  Sender: FDA-Public Use
  Company Number: US-BRISTOL-MYERS SQUIBB COMPANY-14680441

PATIENT
  Age: 65 Year
  Sex: Female

DRUGS (2)
  1. IXEMPRA KIT [Suspect]
     Indication: RENAL CELL CARCINOMA
     Dosage: INITIAL DOSE ON 31MAR09. 6MG/M2 GIVEN OVER 1HR ON DAY1-5 LAST DOSE ON CYCLE-4,DAY2
     Route: 042
     Dates: start: 20090331, end: 20090609
  2. DECADRON [Concomitant]
     Dosage: CYCLE-4,DAY-2
     Dates: start: 20090609

REACTIONS (6)
  - HEADACHE [None]
  - HYPERTENSION [None]
  - PAPILLOEDEMA [None]
  - PNEUMONIA [None]
  - REVERSIBLE POSTERIOR LEUKOENCEPHALOPATHY SYNDROME [None]
  - VISION BLURRED [None]
